FAERS Safety Report 10882538 (Version 1)
Quarter: 2015Q1

REPORT INFORMATION
  Report Type: Spontaneous
  Country: US (occurrence: None)
  Receive Date: 20150226
  Receipt Date: 20150226
  Transmission Date: 20150721
  Serious: Yes (Hospitalization)
  Sender: FDA-Public Use
  Company Number: RAP-0062-2015

PATIENT
  Age: 44 Year
  Sex: Female
  Weight: 37.2 kg

DRUGS (1)
  1. PROCYSBI DELAYED-RELEASE [Suspect]
     Active Substance: CYSTEAMINE BITARTRATE
     Indication: CYSTINOSIS
     Dosage: 1200 MG (600 MG,1 IN 12 HR),PER ORAL
     Route: 048
     Dates: start: 201501

REACTIONS (2)
  - Drug dose omission [None]
  - Diarrhoea [None]

NARRATIVE: CASE EVENT DATE: 20150202
